FAERS Safety Report 10908049 (Version 12)
Quarter: 2021Q1

REPORT INFORMATION
  Report Type: Spontaneous
  Country: US (occurrence: US)
  Receive Date: 20150312
  Receipt Date: 20210215
  Transmission Date: 20210419
  Serious: No
  Sender: FDA-Public Use
  Company Number: US-PFIZER INC-2015029957

PATIENT
  Age: 54 Year
  Sex: Male

DRUGS (20)
  1. LORAZEPAM. [Concomitant]
     Active Substance: LORAZEPAM
     Indication: ANXIETY
     Dosage: 1 MG, AS NEEDED (TWICE A DAY AS NEEDED)
     Route: 048
     Dates: start: 20140723
  2. TRIAMCINOLONE ACETONIDE. [Concomitant]
     Active Substance: TRIAMCINOLONE ACETONIDE
     Dosage: UNK, 3X/DAY (APPLY TO THE RED SKIN)
  3. LANSOPRAZOLE. [Concomitant]
     Active Substance: LANSOPRAZOLE
     Dosage: 30 MG, DAILY (1 EVERY DAY)
     Route: 048
  4. BABY ASPIRIN [Concomitant]
     Active Substance: ASPIRIN
     Dosage: 81 MG, DAILY
     Route: 048
  5. TOPAMAX [Concomitant]
     Active Substance: TOPIRAMATE
     Dosage: 50 MG, 1X/DAY (1 EVERY NIGHT AT BEDTIME)
     Route: 048
  6. WELLBUTRIN XL [Concomitant]
     Active Substance: BUPROPION HYDROCHLORIDE
     Dosage: 150 MG, DAILY (1 TABLET EVERY DAY)
     Route: 048
  7. LORAZEPAM. [Concomitant]
     Active Substance: LORAZEPAM
     Indication: MAJOR DEPRESSION
     Dosage: 1 MG, 3X/DAY (1 THREE X A DAY)
     Route: 048
  8. WELLBUTRIN [Concomitant]
     Active Substance: BUPROPION HYDROCHLORIDE
     Indication: DEPRESSION
     Dosage: 150 MG, 1X/DAY
     Route: 048
     Dates: start: 20100729
  9. ZOLPIDEM TARTRATE. [Concomitant]
     Active Substance: ZOLPIDEM TARTRATE
     Indication: MAJOR DEPRESSION
     Dosage: 10 MG, 1X/DAY (1 EVERY NIGHT AT BEDTIME MDD 1)
     Route: 048
  10. CALCIUM CARBONATE. [Concomitant]
     Active Substance: CALCIUM CARBONATE
     Dosage: 1500 MG, 2X/DAY
     Route: 048
  11. ZOLPIDEM [Concomitant]
     Active Substance: ZOLPIDEM TARTRATE
     Indication: SLEEP DISORDER
     Dosage: 10 MG, AS NEEDED (HS)
     Route: 048
     Dates: start: 20150130
  12. ANUSOL?HC [Concomitant]
     Active Substance: HYDROCORTISONE
     Dosage: UNK, 2X/DAY (APPLY TO AFFECTED AREA PERINEUM TWICE A DAY AS DIRECTED)
  13. LUTEIN [Concomitant]
     Active Substance: LUTEIN
     Dosage: UNK, DAILY
  14. GLUCOSAMINE + CHONDROITIN [Concomitant]
     Dosage: 1 DF, DAILY (CHONDROITIN SULFATE?1500)/(GLUCOSAMINE SULFATE?1200)
     Route: 048
  15. RELPAX [Suspect]
     Active Substance: ELETRIPTAN HYDROBROMIDE
     Dosage: 2 DF, AS NEEDED (2 AT OUTSET HEADACHE, MAY REPEAT DOSE 1 HR IF NEEDED)
     Route: 048
  16. FLUTICASONE PROPIONATE. [Concomitant]
     Active Substance: FLUTICASONE PROPIONATE
     Dosage: 2 DF, DAILY (50 MCG/ACT, 2 SPRAYS EVERY NOSTRIL)
     Route: 045
  17. RELPAX [Suspect]
     Active Substance: ELETRIPTAN HYDROBROMIDE
     Indication: MIGRAINE
     Dosage: 40 MG, AS NEEDED (EVERYDAY AS DIRECTED REPEAT IN 24 HOURS)
     Route: 048
  18. RELPAX [Suspect]
     Active Substance: ELETRIPTAN HYDROBROMIDE
     Indication: HEADACHE
     Dosage: 40 MG, AS NEEDED (REPEAT DOSE 1 AFTER 1 HOUR IF NEEDED)
     Route: 048
     Dates: start: 2008
  19. RELPAX [Suspect]
     Active Substance: ELETRIPTAN HYDROBROMIDE
     Dosage: UNK
  20. SAW PALMETTO [Concomitant]
     Active Substance: HERBALS\SAW PALMETTO
     Dosage: UNK

REACTIONS (2)
  - Off label use [Unknown]
  - Stress [Unknown]
